FAERS Safety Report 11513041 (Version 1)
Quarter: 2015Q3

REPORT INFORMATION
  Report Type: Spontaneous
  Country: US (occurrence: US)
  Receive Date: 20150903
  Receipt Date: 20150903
  Transmission Date: 20151125
  Serious: No
  Sender: FDA-Public Use
  Company Number: US-ELI_LILLY_AND_COMPANY-US201209005951

PATIENT
  Age: 77 Year
  Sex: Female

DRUGS (2)
  1. CYMBALTA [Suspect]
     Active Substance: DULOXETINE HYDROCHLORIDE
     Indication: DEPRESSION
     Dosage: 20MG/DAY
  2. XANAX [Concomitant]
     Active Substance: ALPRAZOLAM

REACTIONS (6)
  - Drug withdrawal syndrome [Not Recovered/Not Resolved]
  - Asthenia [Not Recovered/Not Resolved]
  - Tremor [Not Recovered/Not Resolved]
  - Insomnia [Unknown]
  - Malaise [Not Recovered/Not Resolved]
  - Discomfort [Not Recovered/Not Resolved]
